FAERS Safety Report 7749029-6 (Version None)
Quarter: 2011Q3

REPORT INFORMATION
  Report Type: 
  Country: None (occurrence: None)
  Receive Date: 20110909
  Receipt Date: 20110824
  Transmission Date: 20111222
  Serious: Yes (Death, Hospitalization, Other)
  Sender: FDA-Public Use
  Company Number: DSA_47555_2011

PATIENT
  Sex: Male

DRUGS (40)
  1. CLOBETASOL PROPIONATE [Concomitant]
  2. DESONIDE [Concomitant]
  3. SIMVASTATIN [Concomitant]
  4. BACTRIM [Concomitant]
  5. HYDROCORTISONE [Concomitant]
  6. DUONEB [Concomitant]
  7. COMBIVENT [Concomitant]
  8. ATIVAN [Concomitant]
  9. DULCOLAX [Concomitant]
  10. GEMZAR [Suspect]
     Indication: PRODUCT USED FOR UNKNOWN INDICATION
     Dosage: DF
  11. TARGRETIN [Concomitant]
  12. OXYCONTIN [Concomitant]
  13. CLOBETASOL PROPIONATE [Concomitant]
  14. TRIAMCINOLONE [Concomitant]
  15. KETOCONAZOLE [Concomitant]
  16. PROTONIX [Concomitant]
  17. TEMOVATE [Concomitant]
  18. FLEXERIL [Concomitant]
  19. TOBRAMYCIN [Concomitant]
  20. ALBUTEROL [Concomitant]
  21. ELIDEL [Suspect]
     Indication: ECZEMA
     Dosage: DF TOPICAL
     Route: 061
     Dates: start: 20040101
  22. FLUOCINONIDE [Concomitant]
  23. OXSORALEN-ULTRA [Concomitant]
  24. ATROPINE SULFATE [Concomitant]
  25. MUPIROCIN [Concomitant]
  26. OXYCODONE HCL [Concomitant]
  27. ZOSYN [Concomitant]
  28. DOXIL [Suspect]
     Indication: PRODUCT USED FOR UNKNOWN INDICATION
     Dosage: DF
  29. PROPIONATE [Concomitant]
  30. AMOXICILLIN [Concomitant]
  31. CLARINEX [Concomitant]
  32. ALLEGRA D 24 HOUR [Concomitant]
  33. CEFTIN [Concomitant]
  34. MORPHINE [Concomitant]
  35. TYLENOL REGULAR [Concomitant]
  36. COMPAZINE [Concomitant]
  37. MORPHINE SULFATE [Concomitant]
  38. ONTAK [Concomitant]
  39. BIAFINE [Concomitant]
  40. ATROVENT [Concomitant]

REACTIONS (15)
  - ERYTHEMA [None]
  - CONFUSIONAL STATE [None]
  - BLOOD CALCIUM DECREASED [None]
  - DYSPNOEA [None]
  - OEDEMA PERIPHERAL [None]
  - BLOOD ALBUMIN DECREASED [None]
  - ACTINIC KERATOSIS [None]
  - SOMNOLENCE [None]
  - PAIN [None]
  - INJURY [None]
  - PERIPHERAL T-CELL LYMPHOMA UNSPECIFIED [None]
  - PYODERMA [None]
  - LETHARGY [None]
  - ACUTE RESPIRATORY FAILURE [None]
  - ASTHENIA [None]
